FAERS Safety Report 7179842-8 (Version None)
Quarter: 2010Q4

REPORT INFORMATION
  Report Type: 
  Country: None (occurrence: None)
  Receive Date: 20101209
  Receipt Date: 20101130
  Transmission Date: 20110411
  Serious: Yes (Other)
  Sender: FDA-Public Use
  Company Number: 2010JP007073

PATIENT
  Age: 54 Year
  Sex: Female

DRUGS (1)
  1. PROGRAF [Suspect]
     Indication: SCLERODERMA
     Dosage: 3 MG, UID/QD, ORAL
     Route: 048
     Dates: start: 20101128

REACTIONS (2)
  - BREAST CANCER FEMALE [None]
  - BREAST MASS [None]
